FAERS Safety Report 8952551 (Version 1)
Quarter: 2012Q4

REPORT INFORMATION
  Report Type: 
  Country: US (occurrence: US)
  Receive Date: 20121205
  Receipt Date: 20121205
  Transmission Date: 20130627
  Serious: No
  Sender: FDA-Public Use
  Company Number: US-PFIZER INC-2012288215

PATIENT
  Sex: Male
  Weight: 24.94 kg

DRUGS (1)
  1. GENOTROPIN [Suspect]
     Indication: GROWTH FAILURE
     Dosage: UNK
     Dates: start: 201204

REACTIONS (1)
  - No adverse event [Unknown]
